FAERS Safety Report 8460065-7 (Version None)
Quarter: 2012Q2

REPORT INFORMATION
  Report Type: 
  Country: None (occurrence: None)
  Receive Date: 20120622
  Receipt Date: 20120619
  Transmission Date: 20120825
  Serious: Yes (Death)
  Sender: FDA-Public Use
  Company Number: AU-B.I. PHARMACEUTICALS,INC./RIDGEFIELD-2012-AU-01125AU

PATIENT
  Sex: Male

DRUGS (2)
  1. PRADAXA [Suspect]
     Indication: CEREBROVASCULAR ACCIDENT PROPHYLAXIS
     Dates: start: 20110919, end: 20120301
  2. PRADAXA [Suspect]
     Indication: ATRIAL FIBRILLATION

REACTIONS (3)
  - CEREBROVASCULAR ACCIDENT [None]
  - FALL [None]
  - LACERATION [None]
